FAERS Safety Report 22197072 (Version 2)
Quarter: 2023Q2

REPORT INFORMATION
  Report Type: Spontaneous
  Country: CN (occurrence: CN)
  Receive Date: 20230411
  Receipt Date: 20230411
  Transmission Date: 20230722
  Serious: Yes (Hospitalization, Other)
  Sender: FDA-Public Use
  Company Number: CN-MLMSERVICE-20230331-4193646-1

PATIENT
  Age: 39 Year
  Sex: Male

DRUGS (1)
  1. METHYLPREDNISOLONE [Suspect]
     Active Substance: METHYLPREDNISOLONE
     Indication: Pemphigus
     Dosage: 40 MG, 1X/DAY

REACTIONS (3)
  - Condition aggravated [Recovering/Resolving]
  - Pemphigus [Recovering/Resolving]
  - Drug ineffective [Unknown]
